FAERS Safety Report 5004736-3 (Version None)
Quarter: 2006Q1

REPORT INFORMATION
  Report Type: 
  Country: None (occurrence: None)
  Receive Date: 20060321
  Receipt Date: 20060206
  Transmission Date: 20060701
  Serious: No
  Sender: FDA-Public Use
  Company Number: 2006US000339

PATIENT
  Age: 71 Year
  Sex: Female

DRUGS (16)
  1. VESICARE [Suspect]
     Indication: HYPERTONIC BLADDER
     Dosage: SEE IMAGE
     Route: 048
     Dates: start: 20060101
  2. SYNTHROID [Concomitant]
  3. PREMARIN [Concomitant]
  4. PROVERA [Concomitant]
  5. REGLAN [Concomitant]
  6. HYDROCHLOROTHIAZIDE [Concomitant]
  7. VITAMIN B-12 [Concomitant]
  8. ASCORBIC ACID [Concomitant]
  9. VITAMIN E (ASCORBIC ACID) [Concomitant]
  10. LYSINE (LYSINE) [Concomitant]
  11. MULTI-B (THIAMINE HYDROCHLORIDE, NICOTINAMIDE) [Concomitant]
  12. GINKOBIL (GINKGO BILOBA EXTRACT) [Concomitant]
  13. GLUCOSAMINE W/CHONDROITIN (GLUCOSAMINE, CHONDROITIN SULFATE) [Concomitant]
  14. CALCIUM W/MAGNESIUM (MAGNESIUM, CALCIUM) [Concomitant]
  15. COENZYME Q10 [Concomitant]
  16. VITAMIN B5 [Concomitant]

REACTIONS (5)
  - ABDOMINAL PAIN [None]
  - BREAST PAIN [None]
  - CONSTIPATION [None]
  - DRUG INEFFECTIVE [None]
  - VISION BLURRED [None]
